FAERS Safety Report 7384666-2 (Version None)
Quarter: 2011Q1

REPORT INFORMATION
  Report Type: 
  Country: None (occurrence: None)
  Receive Date: 20110330
  Receipt Date: 20110316
  Transmission Date: 20110831
  Serious: Yes (Hospitalization)
  Sender: FDA-Public Use
  Company Number: PHHY2010TW17569

PATIENT
  Sex: Male

DRUGS (2)
  1. GLEEVEC [Suspect]
     Indication: GASTROINTESTINAL STROMAL TUMOUR
     Dosage: 400 MG, UNK
     Route: 048
     Dates: start: 20100118, end: 20100512
  2. GLEEVEC [Suspect]
     Dosage: 300 MG, UNK
     Route: 048
     Dates: end: 20100512

REACTIONS (13)
  - DISCOMFORT [None]
  - WEIGHT DECREASED [None]
  - ABDOMINAL DISCOMFORT [None]
  - INSOMNIA [None]
  - SPEECH DISORDER [None]
  - GAIT DISTURBANCE [None]
  - ABDOMINAL PAIN [None]
  - NAUSEA [None]
  - ASTHENIA [None]
  - DIZZINESS [None]
  - ABDOMINAL DISTENSION [None]
  - DIARRHOEA [None]
  - ANAEMIA [None]
